FAERS Safety Report 10932428 (Version 1)
Quarter: 2015Q1

REPORT INFORMATION
  Report Type: Spontaneous
  Country: US (occurrence: None)
  Receive Date: 20150318
  Receipt Date: 20150318
  Transmission Date: 20150721
  Serious: Yes (Life-Threatening)
  Sender: FDA-Public Use
  Company Number: NSR_02001_2015

PATIENT
  Age: 38 Year
  Sex: Female
  Weight: 99.79 kg

DRUGS (2)
  1. METOCLOPRAMIDE 10 MG [Suspect]
     Active Substance: METOCLOPRAMIDE
     Indication: VOMITING
     Route: 048
     Dates: start: 20150120, end: 20150212
  2. BISOPROLOL [Concomitant]
     Active Substance: BISOPROLOL

REACTIONS (4)
  - Depression [None]
  - Self-injurious ideation [None]
  - Breast swelling [None]
  - Suicidal ideation [None]
